FAERS Safety Report 15699149 (Version 3)
Quarter: 2019Q1

REPORT INFORMATION
  Report Type: Spontaneous
  Country: US (occurrence: US)
  Receive Date: 20181207
  Receipt Date: 20190318
  Transmission Date: 20190417
  Serious: Yes (Other)
  Sender: FDA-Public Use
  Company Number: US-PFIZER INC-2018502838

PATIENT
  Age: 74 Year
  Sex: Female
  Weight: 104 kg

DRUGS (1)
  1. LYRICA [Suspect]
     Active Substance: PREGABALIN
     Indication: FIBROMYALGIA
     Dosage: 300 MG, 1X/DAY (COUNT SIZE DISPENSED: 30 CAPSULES)
     Route: 048

REACTIONS (5)
  - Fall [Unknown]
  - Product use issue [Unknown]
  - Ankle fracture [Recovered/Resolved with Sequelae]
  - Condition aggravated [Unknown]
  - Drug hypersensitivity [Unknown]

NARRATIVE: CASE EVENT DATE: 20181225
